FAERS Safety Report 4506158-8 (Version None)
Quarter: 2004Q4

REPORT INFORMATION
  Report Type: 
  Country: None (occurrence: None)
  Receive Date: 20041025
  Receipt Date: 20040414
  Transmission Date: 20050328
  Serious: Yes (Other)
  Sender: FDA-Public Use
  Company Number: US-JNJFOC-20040403281

PATIENT
  Age: 55 Year
  Sex: Male

DRUGS (2)
  1. REMICADE [Suspect]
     Indication: CROHN'S DISEASE
     Dosage: INTRAVENOUS
     Route: 042
     Dates: start: 20040201
  2. MERCAPTOPURINE [Concomitant]

REACTIONS (3)
  - ANAEMIA [None]
  - LEUKOPENIA [None]
  - THROMBOCYTOPENIA [None]
